FAERS Safety Report 12164382 (Version 1)
Quarter: 2016Q1

REPORT INFORMATION
  Report Type: Spontaneous
  Country: JP (occurrence: JP)
  Receive Date: 20160309
  Receipt Date: 20160309
  Transmission Date: 20160526
  Serious: Yes (Hospitalization, Other)
  Sender: FDA-Public Use
  Company Number: JP-PFIZER INC-2016140551

PATIENT

DRUGS (3)
  1. AZULFIDINE EN-TABS [Suspect]
     Active Substance: SULFASALAZINE
     Indication: RHEUMATOID ARTHRITIS
     Dosage: 500 MG, DAILY
     Route: 048
     Dates: start: 20160129, end: 20160210
  2. MERCAZOLE [Concomitant]
     Active Substance: CARBIMAZOLE
     Route: 048
  3. AZULFIDINE EN-TABS [Suspect]
     Active Substance: SULFASALAZINE
     Dosage: 750 MG, DAILY
     Route: 048
     Dates: start: 20160211

REACTIONS (5)
  - Granulocyte count decreased [Unknown]
  - Tonsillitis [Unknown]
  - Diarrhoea [Unknown]
  - Blood creatine phosphokinase increased [Unknown]
  - White blood cell count decreased [Not Recovered/Not Resolved]

NARRATIVE: CASE EVENT DATE: 201602
